FAERS Safety Report 4885039-4 (Version None)
Quarter: 2006Q1

REPORT INFORMATION
  Report Type: 
  Country: None (occurrence: None)
  Receive Date: 20060119
  Receipt Date: 20051005
  Transmission Date: 20060701
  Serious: Yes (Death, Hospitalization)
  Sender: FDA-Public Use
  Company Number: US-MERCK-0510USA04090

PATIENT
  Age: 56 Year
  Sex: Male
  Weight: 120 kg

DRUGS (16)
  1. VIOXX [Suspect]
     Indication: ARTHRITIS
     Route: 048
     Dates: start: 20000101, end: 20000601
  2. VIOXX [Suspect]
     Route: 048
     Dates: start: 20000601, end: 20020401
  3. LASIX [Concomitant]
     Route: 065
  4. HUMIBID DM [Concomitant]
     Route: 065
  5. ISOSORBIDE MONONITRATE [Concomitant]
     Route: 065
  6. ALTACE [Concomitant]
     Route: 065
  7. PLAVIX [Concomitant]
     Route: 065
  8. PREVACID [Concomitant]
     Route: 065
  9. METOCLOPRAMIDE [Concomitant]
     Route: 065
  10. INSULIN [Concomitant]
     Route: 065
  11. INSULIN [Concomitant]
     Route: 065
  12. ZOCOR [Concomitant]
     Route: 065
  13. NITROQUICK [Concomitant]
     Route: 065
  14. OXYCONTIN [Concomitant]
     Route: 065
  15. PREDNISONE [Concomitant]
     Route: 065
  16. VENTOLIN [Concomitant]
     Route: 055

REACTIONS (16)
  - ABDOMINAL DISTENSION [None]
  - ABDOMINAL PAIN UPPER [None]
  - CARDIAC FAILURE CONGESTIVE [None]
  - CHEST PAIN [None]
  - CORONARY ARTERY DISEASE [None]
  - DIABETES MELLITUS [None]
  - FATIGUE [None]
  - GASTROINTESTINAL HAEMORRHAGE [None]
  - HAEMORRHAGE [None]
  - IDIOPATHIC PULMONARY FIBROSIS [None]
  - LUNG DISORDER [None]
  - NAUSEA [None]
  - OBESITY [None]
  - PNEUMONIA [None]
  - PRURITUS [None]
  - RHEUMATOID ARTHRITIS [None]
